FAERS Safety Report 9360906 (Version 1)
Quarter: 2013Q2

REPORT INFORMATION
  Report Type: Spontaneous
  Country: US (occurrence: None)
  Receive Date: 20130618
  Receipt Date: 20130618
  Transmission Date: 20140414
  Serious: Yes (Hospitalization, Other)
  Sender: FDA-Public Use
  Company Number: 2013P1007048

PATIENT
  Age: 72 Year
  Sex: Female
  Weight: 77.11 kg

DRUGS (11)
  1. KERAFOAM 60 GM [Suspect]
     Indication: ACNE
     Route: 061
     Dates: start: 20101029, end: 2010
  2. KERAFOAM 60 GM [Suspect]
     Indication: IMPAIRED HEALING
     Route: 061
     Dates: start: 20101029, end: 2010
  3. ENBREL [Suspect]
     Dates: start: 201004, end: 201004
  4. PREDNISONE [Suspect]
     Dates: start: 201105, end: 201112
  5. CYCLOPHOSPHAMIDE [Suspect]
     Dates: start: 201105, end: 201112
  6. DOXORUBICIN [Suspect]
     Indication: HEPATIC CANCER
     Dates: start: 201105, end: 201112
  7. VINCRISTINE [Suspect]
     Dates: start: 201105, end: 201112
  8. RITUXIMAB [Suspect]
     Indication: HEPATIC CANCER
     Dates: start: 201105, end: 201112
  9. RETIN-A [Concomitant]
  10. LEVOTHYROXINE [Concomitant]
  11. CRESTOR [Concomitant]

REACTIONS (9)
  - Off label use [None]
  - Dysstasia [None]
  - Renal failure [None]
  - Coma [None]
  - Hepatic cancer stage IV [None]
  - B-cell lymphoma [None]
  - Type 2 diabetes mellitus [None]
  - Neuropathy peripheral [None]
  - Skin disorder [None]
